FAERS Safety Report 19465504 (Version 1)
Quarter: 2021Q2

REPORT INFORMATION
  Report Type: Spontaneous
  Country: US (occurrence: US)
  Receive Date: 20210624
  Receipt Date: 20210624
  Transmission Date: 20210717
  Serious: No
  Sender: FDA-Public Use
  Company Number: US-ELITE LABORATORIES INC.-2021ELT00052

PATIENT
  Age: 47 Year
  Sex: Female

DRUGS (1)
  1. DEXTROAMPHET SACCHARAT, AMPHET ASPARTATE, DEXTROAMPHET SULFATE AND AMPHET SULFAT [Suspect]
     Active Substance: AMPHETAMINE ASPARTATE\AMPHETAMINE SULFATE\DEXTROAMPHETAMINE SACCHARATE\DEXTROAMPHETAMINE SULFATE
     Dosage: UNK

REACTIONS (10)
  - Abdominal pain upper [Unknown]
  - Asthenia [Unknown]
  - Joint swelling [Unknown]
  - Malaise [Unknown]
  - Chest pain [Unknown]
  - Fatigue [Unknown]
  - Sedation [Unknown]
  - Feeling abnormal [Unknown]
  - Speech disorder [Unknown]
  - Amnesia [Unknown]
